FAERS Safety Report 9979249 (Version 2)
Quarter: 2015Q1

REPORT INFORMATION
  Report Type: Report from Study
  Country: PR (occurrence: PR)
  Receive Date: 20140306
  Receipt Date: 20150216
  Transmission Date: 20150721
  Serious: Yes (Hospitalization, Other)
  Sender: FDA-Public Use
  Company Number: PR-ABBVIE-13P-131-1173252-00

PATIENT
  Sex: Female
  Weight: 85.81 kg

DRUGS (5)
  1. LIRICA [Concomitant]
     Indication: PRODUCT USED FOR UNKNOWN INDICATION
  2. HUMIRA [Suspect]
     Active Substance: ADALIMUMAB
     Indication: RHEUMATOID ARTHRITIS
     Route: 058
  3. UNKNOWN MEDICATION [Concomitant]
     Active Substance: UNSPECIFIED INGREDIENT
     Indication: BLOOD PRESSURE
     Route: 048
  4. SINGULAIR [Concomitant]
     Active Substance: MONTELUKAST SODIUM
     Indication: PULMONARY FIBROSIS
     Route: 048
  5. HUMIRA [Suspect]
     Active Substance: ADALIMUMAB

REACTIONS (7)
  - Pain [Recovering/Resolving]
  - Hypertension [Recovering/Resolving]
  - Inflammation [Recovering/Resolving]
  - Haemoglobin decreased [Recovered/Resolved]
  - Shoulder operation [Recovering/Resolving]
  - Blood glucose increased [Recovering/Resolving]
  - Joint arthroplasty [Recovering/Resolving]

NARRATIVE: CASE EVENT DATE: 2013
